FAERS Safety Report 5066144-9 (Version None)
Quarter: 2006Q3

REPORT INFORMATION
  Report Type: 
  Country: None (occurrence: None)
  Receive Date: 20060725
  Receipt Date: 20060712
  Transmission Date: 20061208
  Serious: Yes (Other)
  Sender: FDA-Public Use
  Company Number: 2006BH011857

PATIENT
  Age: 50 Year
  Sex: Female
  Weight: 40 kg

DRUGS (10)
  1. HEPARIN SODIUM [Suspect]
     Indication: THROMBOSIS PROPHYLAXIS
     Dosage: 5000 IU IVBOL ; 2000 IU; EVERY HR
     Route: 040
  2. FENTANYL [Concomitant]
  3. PROPOFOL [Concomitant]
  4. ROCUONIUM [Concomitant]
  5. ISOFLURANE [Concomitant]
  6. VECURONIUM BROMIDE [Concomitant]
  7. ATENOLOL [Concomitant]
  8. LOSARTAN POSTASSIUM [Concomitant]
  9. VALPROATE SODIUM [Concomitant]
  10. NIMODIPINE [Concomitant]

REACTIONS (8)
  - BLOOD PRESSURE SYSTOLIC INCREASED [None]
  - ELECTROCARDIOGRAM QT PROLONGED [None]
  - HAEMODYNAMIC INSTABILITY [None]
  - HEART RATE DECREASED [None]
  - HYPOCALCAEMIA [None]
  - PROCEDURAL COMPLICATION [None]
  - PROCEDURAL HYPOTENSION [None]
  - THERAPY NON-RESPONDER [None]
